FAERS Safety Report 5514353-4 (Version None)
Quarter: 2007Q4

REPORT INFORMATION
  Report Type: 
  Country: None (occurrence: None)
  Receive Date: 20071113
  Receipt Date: 20070420
  Transmission Date: 20080405
  Serious: No
  Sender: FDA-Public Use
  Company Number: A0648168A

PATIENT
  Age: 81 Year
  Sex: Female

DRUGS (4)
  1. COREG [Suspect]
     Indication: HYPERTENSION
     Dosage: 12.5MCG TWICE PER DAY
     Route: 048
     Dates: start: 20061101
  2. AVAPRO [Concomitant]
  3. SULAR [Concomitant]
  4. LIPITOR [Concomitant]

REACTIONS (1)
  - PHOTOPHOBIA [None]
